FAERS Safety Report 21513162 (Version 1)
Quarter: 2022Q4

REPORT INFORMATION
  Report Type: Spontaneous
  Country: CN (occurrence: CN)
  Receive Date: 20221027
  Receipt Date: 20221027
  Transmission Date: 20230112
  Serious: Yes (Hospitalization, Other)
  Sender: FDA-Public Use
  Company Number: CN-NOVARTISPH-NVSC2022CN239094

PATIENT
  Age: 75 Year
  Sex: Male
  Weight: 50 kg

DRUGS (1)
  1. PAZOPANIB [Suspect]
     Active Substance: PAZOPANIB
     Indication: Metastasis
     Dosage: 800 MG, QD
     Route: 048
     Dates: start: 20220723, end: 20220927

REACTIONS (5)
  - Cardiac failure [Recovering/Resolving]
  - Atrial fibrillation [Recovering/Resolving]
  - Heart rate decreased [Recovering/Resolving]
  - Atrial enlargement [Recovering/Resolving]
  - Brain natriuretic peptide increased [Recovering/Resolving]

NARRATIVE: CASE EVENT DATE: 20220927
